FAERS Safety Report 8874074 (Version 1)
Quarter: 2012Q4

REPORT INFORMATION
  Report Type: 
  Country: DE (occurrence: DE)
  Receive Date: 20121023
  Receipt Date: 20121023
  Transmission Date: 20130627
  Serious: Yes (Hospitalization)
  Sender: FDA-Public Use
  Company Number: DE-PFIZER INC-2012258990

PATIENT
  Age: 69 Year
  Sex: Female
  Weight: 98 kg

DRUGS (10)
  1. GENOTROPIN [Suspect]
     Indication: HYPOPITUITARISM
     Dosage: 0.2 mg, 1x/day, 7injections/week
     Route: 058
     Dates: start: 20070206
  2. HYDROCORTISONE [Concomitant]
     Indication: BLOOD CORTICOTROPHIN DECREASED
     Dosage: UNK
     Dates: start: 20050501
  3. BISOPROLOL [Concomitant]
     Indication: ESSENTIAL HYPERTENSION
     Dosage: UNK
     Dates: start: 20050501
  4. CANDESARTAN CILEXETIL [Concomitant]
     Indication: ESSENTIAL HYPERTENSION
     Dosage: UNK
     Dates: start: 20050501
  5. ESTROGEN W/MEDROXYPROGESTERON [Concomitant]
     Indication: BLOOD LUTEINISING HORMONE DECREASED
     Dosage: UNK
     Dates: start: 20050501
  6. ESTROGEN W/MEDROXYPROGESTERON [Concomitant]
     Indication: BLOOD FOLLICLE STIMULATING HORMONE DECREASED
  7. ESTROGEN W/MEDROXYPROGESTERON [Concomitant]
     Indication: HYPOGONADISM FEMALE
  8. THYRONAJOD [Concomitant]
     Indication: BLOOD THYROID STIMULATING HORMONE DECREASED
     Dosage: UNK
     Dates: start: 20050501
  9. THYRONAJOD [Concomitant]
     Indication: PRIMARY HYPOTHYROIDISM
  10. METFORMIN [Concomitant]
     Indication: DIABETES MELLITUS
     Dosage: UNK
     Dates: start: 20061215

REACTIONS (1)
  - Viral infection [Unknown]
